FAERS Safety Report 6842915-0 (Version None)
Quarter: 2010Q3

REPORT INFORMATION
  Report Type: 
  Country: None (occurrence: None)
  Receive Date: 20100714
  Receipt Date: 20070808
  Transmission Date: 20110219
  Serious: No
  Sender: FDA-Public Use
  Company Number: US-PFIZER INC-2007066921

PATIENT
  Sex: Female
  Weight: 54.4 kg

DRUGS (9)
  1. CHANTIX [Suspect]
     Indication: SMOKING CESSATION THERAPY
     Dates: start: 20070101, end: 20070807
  2. PRILOSEC [Concomitant]
  3. PROZAC [Concomitant]
  4. ACETYLSALICYLIC ACID [Concomitant]
  5. SULAR [Concomitant]
  6. CARVEDILOL [Concomitant]
     Indication: BLOOD PRESSURE
  7. ALPRAZOLAM [Concomitant]
  8. POTASSIUM CHLORIDE [Concomitant]
  9. PLAVIX [Concomitant]

REACTIONS (4)
  - ASTHENIA [None]
  - DYSGEUSIA [None]
  - MALAISE [None]
  - NAUSEA [None]
